FAERS Safety Report 10045193 (Version 2)
Quarter: 2014Q2

REPORT INFORMATION
  Report Type: Report from Study
  Country: JP (occurrence: JP)
  Receive Date: 20140328
  Receipt Date: 20140502
  Transmission Date: 20141212
  Serious: Yes (Other)
  Sender: FDA-Public Use
  Company Number: JP-009507513-1403JPN012177

PATIENT
  Age: 48 Year
  Sex: Female

DRUGS (33)
  1. FOSAPREPITANT DIMEGLUMINE [Suspect]
     Indication: PROPHYLAXIS OF NAUSEA AND VOMITING
     Dosage: 150 MG, ONCE
     Route: 041
     Dates: start: 20130418, end: 20130418
  2. FOSAPREPITANT DIMEGLUMINE [Suspect]
     Dosage: 150 MG, ONCE
     Route: 041
     Dates: start: 20130509, end: 20130509
  3. FOSAPREPITANT DIMEGLUMINE [Suspect]
     Dosage: 150 MG, ONCE
     Route: 041
     Dates: start: 20130530, end: 20130530
  4. FOSAPREPITANT DIMEGLUMINE [Suspect]
     Dosage: 150 MG, ONCE
     Route: 041
     Dates: start: 20130620, end: 20130620
  5. FARMORUBICIN [Suspect]
     Indication: BREAST CANCER
     Dosage: 140 MG, ONCE
     Route: 042
     Dates: start: 20130418, end: 20130418
  6. FARMORUBICIN [Suspect]
     Dosage: 140 MG, ONCE
     Route: 042
     Dates: start: 20130509, end: 20130509
  7. FARMORUBICIN [Suspect]
     Dosage: 140 MG, ONCE
     Route: 042
     Dates: start: 20130530, end: 20130530
  8. FARMORUBICIN [Suspect]
     Dosage: 140 MG, ONCE
     Route: 042
     Dates: start: 20130620, end: 20130620
  9. ENDOXAN [Suspect]
     Indication: BREAST CANCER
     Dosage: 700 MG, ONCE
     Route: 042
     Dates: start: 20130418, end: 20130418
  10. ENDOXAN [Suspect]
     Dosage: 700 MG, ONCE
     Route: 042
     Dates: start: 20130509, end: 20130509
  11. ENDOXAN [Suspect]
     Dosage: 700 MG, ONCE
     Route: 042
     Dates: start: 20130530, end: 20130530
  12. ENDOXAN [Suspect]
     Dosage: 700 MG, ONCE
     Route: 042
     Dates: start: 20130620, end: 20130620
  13. 5-FU [Suspect]
     Indication: BREAST CANCER
     Dosage: 700 MG, ONCE
     Route: 042
     Dates: start: 20130418, end: 20130418
  14. 5-FU [Suspect]
     Dosage: 700 MG, ONCE
     Route: 042
     Dates: start: 20130509, end: 20130509
  15. 5-FU [Suspect]
     Dosage: 700 MG, ONCE
     Route: 042
     Dates: start: 20130530, end: 20130530
  16. 5-FU [Suspect]
     Dosage: 700 MG, ONCE
     Route: 042
     Dates: start: 20130620, end: 20130620
  17. GRANISETRON [Concomitant]
     Dosage: 3 MG, QD
     Dates: start: 20130418, end: 20130418
  18. GRANISETRON [Concomitant]
     Dosage: 3 MG, QD
     Dates: start: 20130509, end: 20130509
  19. GRANISETRON [Concomitant]
     Dosage: 3 MG, QD
     Dates: start: 20130530, end: 20130530
  20. GRANISETRON [Concomitant]
     Dosage: 3 MG, QD
     Dates: start: 20130620, end: 20130620
  21. DECADRON [Concomitant]
     Dosage: 13.2 MG, QD
     Dates: start: 20130418, end: 20130418
  22. DECADRON [Concomitant]
     Dosage: 13.2 MG, QD
     Dates: start: 20130509, end: 20130509
  23. DECADRON [Concomitant]
     Dosage: 13.2 MG, QD
     Dates: start: 20130530, end: 20130530
  24. DECADRON [Concomitant]
     Dosage: 13.2 MG, QD
     Dates: start: 20130620, end: 20130620
  25. DEXAMETHASONE [Concomitant]
     Dosage: UNK
     Dates: start: 20130419, end: 20130421
  26. DEXAMETHASONE [Concomitant]
     Dosage: UNK
     Dates: start: 20130510, end: 20130512
  27. DEXAMETHASONE [Concomitant]
     Dosage: UNK
     Dates: start: 20130531, end: 20130602
  28. DEXAMETHASONE [Concomitant]
     Dosage: UNK
     Dates: start: 20130621, end: 20130622
  29. SELBEX [Concomitant]
     Dosage: UNK
     Dates: start: 20130419, end: 20130421
  30. SELBEX [Concomitant]
     Dosage: UNK
     Dates: start: 20130510, end: 20130512
  31. SELBEX [Concomitant]
     Dosage: UNK
     Dates: start: 20130531, end: 20130602
  32. SELBEX [Concomitant]
     Dosage: UNK
     Dates: start: 20130620, end: 20130624
  33. DERMOVATE [Concomitant]
     Dosage: 5 G, QD
     Dates: start: 20130620, end: 20130624

REACTIONS (7)
  - Agranulocytosis [Recovered/Resolved]
  - Injection site swelling [Unknown]
  - Otitis externa fungal [Recovering/Resolving]
  - Alopecia [Unknown]
  - Injection site pain [Recovering/Resolving]
  - Oedema peripheral [Recovering/Resolving]
  - Stomatitis [Unknown]
